FAERS Safety Report 7085493-6 (Version None)
Quarter: 2010Q4

REPORT INFORMATION
  Report Type: 
  Country: None (occurrence: None)
  Receive Date: 20101105
  Receipt Date: 20101101
  Transmission Date: 20110411
  Serious: Yes (Other)
  Sender: FDA-Public Use
  Company Number: US-PFIZER INC-2010138993

PATIENT
  Sex: Female

DRUGS (3)
  1. CHANTIX [Suspect]
     Indication: SMOKING CESSATION THERAPY
     Dosage: 0.5 MG, 1X/DAY
     Route: 048
     Dates: start: 20080101, end: 20080101
  2. CHANTIX [Suspect]
     Dosage: UNK
     Route: 048
     Dates: start: 20090101, end: 20090101
  3. CHANTIX [Suspect]
     Dosage: UNK
     Route: 048
     Dates: start: 20100912

REACTIONS (1)
  - HYPERTENSION [None]
